FAERS Safety Report 14873188 (Version 1)
Quarter: 2018Q2

REPORT INFORMATION
  Report Type: Spontaneous
  Country: US (occurrence: US)
  Receive Date: 20180424
  Receipt Date: 20180424
  Transmission Date: 20180711
  Serious: Yes (Disabling)
  Sender: FDA-Public Use
  Company Number: None

PATIENT
  Age: 70 Year
  Sex: Female
  Weight: 88.2 kg

DRUGS (11)
  1. IBANDRONATE SODIUM TABLET [Suspect]
     Active Substance: IBANDRONATE SODIUM
     Indication: BONE DENSITY ABNORMAL
     Dosage: ?          QUANTITY:3 TABLET(S);OTHER FREQUENCY:ONCE A MONTH;?
     Route: 048
     Dates: start: 20180109, end: 20180109
  2. COLESTIPOL [Concomitant]
     Active Substance: COLESTIPOL
  3. BABY ASPIRIN [Concomitant]
     Active Substance: ASPIRIN
  4. FIBER TABLETS [Concomitant]
  5. VITAMIN D [Concomitant]
     Active Substance: CHOLECALCIFEROL
  6. GLUCOSAMINE [Concomitant]
     Active Substance: GLUCOSAMINE
  7. VITAMIN A [Concomitant]
     Active Substance: VITAMIN A
  8. VITAMIN C [Concomitant]
     Active Substance: ASCORBIC ACID
  9. EZETIMIBE. [Concomitant]
     Active Substance: EZETIMIBE
  10. CENTRUM [Concomitant]
     Active Substance: VITAMINS
  11. AMLODIPINE [Concomitant]
     Active Substance: AMLODIPINE BESYLATE

REACTIONS (7)
  - Crying [None]
  - Paralysis [None]
  - Pain in jaw [None]
  - Musculoskeletal pain [None]
  - Pain [None]
  - Joint dislocation [None]
  - Musculoskeletal disorder [None]

NARRATIVE: CASE EVENT DATE: 20180109
